FAERS Safety Report 6965092-4 (Version None)
Quarter: 2010Q3

REPORT INFORMATION
  Report Type: 
  Country: None (occurrence: None)
  Receive Date: 20100903
  Receipt Date: 20100827
  Transmission Date: 20110219
  Serious: Yes (Death)
  Sender: FDA-Public Use
  Company Number: IT-NAPPMUNDI-GBR-2010-0006983

PATIENT
  Sex: Male

DRUGS (5)
  1. OXYCONTIN [Suspect]
     Indication: PRODUCT USED FOR UNKNOWN INDICATION
     Dosage: 40 MG, DAILY
     Route: 048
     Dates: start: 20091106, end: 20091124
  2. DEPALGOS [Concomitant]
     Dosage: 1 TABLET, DAILY
     Route: 048
  3. RIVOTRIL [Concomitant]
     Dosage: 0.6 MG, DAILY
     Route: 048
     Dates: start: 20091106, end: 20091124
  4. ALLOPURINOL [Concomitant]
     Dosage: 300 MG, UNK
     Route: 048
  5. RANIDIL [Concomitant]
     Dosage: 150 MG, DAILY
     Route: 048

REACTIONS (1)
  - CARDIO-RESPIRATORY ARREST [None]
